FAERS Safety Report 9009277 (Version 1)
Quarter: 2013Q1

REPORT INFORMATION
  Report Type: Spontaneous
  Country: JP (occurrence: JP)
  Receive Date: 20130111
  Receipt Date: 20130111
  Transmission Date: 20140127
  Serious: Yes (Hospitalization)
  Sender: FDA-Public Use
  Company Number: JP-GLAXOSMITHKLINE-B0857645A

PATIENT
  Sex: Female

DRUGS (1)
  1. LAMICTAL [Suspect]
     Indication: PRODUCT USED FOR UNKNOWN INDICATION
     Route: 048
     Dates: start: 20120404, end: 20120706

REACTIONS (5)
  - Suicidal ideation [Unknown]
  - Anaemia [Unknown]
  - White blood cell count decreased [Unknown]
  - Hypophagia [Unknown]
  - Nasopharyngitis [Unknown]
